FAERS Safety Report 6749610-7 (Version None)
Quarter: 2010Q2

REPORT INFORMATION
  Report Type: 
  Country: None (occurrence: None)
  Receive Date: 20100601
  Receipt Date: 20100521
  Transmission Date: 20101027
  Serious: Yes (Other)
  Sender: FDA-Public Use
  Company Number: A0860846A

PATIENT
  Age: 74 Year
  Sex: Male

DRUGS (6)
  1. LAMICTAL [Suspect]
     Dosage: 175MG TWICE PER DAY
     Route: 048
     Dates: start: 20100301
  2. LEXAPRO [Suspect]
     Indication: DRUG USE FOR UNKNOWN INDICATION
  3. DIGOXIN [Concomitant]
  4. COUMADIN [Concomitant]
  5. VIMPAT [Concomitant]
  6. SEROQUEL [Concomitant]

REACTIONS (4)
  - ANGER [None]
  - CONFUSIONAL STATE [None]
  - HALLUCINATION [None]
  - SUICIDAL IDEATION [None]
